FAERS Safety Report 5095340-X (Version None)
Quarter: 2006Q3

REPORT INFORMATION
  Report Type: 
  Country: None (occurrence: None)
  Receive Date: 20060901
  Receipt Date: 20060824
  Transmission Date: 20061208
  Serious: Yes (Death, Life-Threatening, Hospitalization)
  Sender: FDA-Public Use
  Company Number: FR-SANOFI-SYNTHELABO-F01200601880

PATIENT
  Sex: Male
  Weight: 55 kg

DRUGS (2)
  1. XELODA [Suspect]
     Dosage: 1000 MG TWICE DAILY FOR 2 WEEKS, Q3W
     Route: 048
     Dates: start: 20060511, end: 20060524
  2. OXALIPLATIN [Suspect]
     Indication: COLORECTAL CANCER METASTATIC
     Route: 042
     Dates: start: 20060511, end: 20060511

REACTIONS (1)
  - SEPSIS [None]
